FAERS Safety Report 22999861 (Version 2)
Quarter: 2023Q4

REPORT INFORMATION
  Report Type: Spontaneous
  Country: US (occurrence: US)
  Receive Date: 20230928
  Receipt Date: 20231015
  Transmission Date: 20240110
  Serious: Yes (Other)
  Sender: FDA-Public Use
  Company Number: US-SANOFI-01779442

PATIENT
  Age: 19 Year
  Sex: Male
  Weight: 59.4 kg

DRUGS (1)
  1. DUPIXENT [Suspect]
     Active Substance: DUPILUMAB
     Indication: Eosinophilic oesophagitis
     Dosage: 300 MG, QW
     Route: 058
     Dates: start: 20220815

REACTIONS (2)
  - Bell^s palsy [Recovered/Resolved]
  - Herpes simplex reactivation [Unknown]

NARRATIVE: CASE EVENT DATE: 20230909
